FAERS Safety Report 8596454-X (Version None)
Quarter: 2012Q3

REPORT INFORMATION
  Report Type: 
  Country: None (occurrence: None)
  Receive Date: 20120806
  Receipt Date: 20120806
  Transmission Date: 20120928
  Serious: Yes (Life-Threatening, Hospitalization, Disabling)
  Sender: FDA-Public Use
  Company Number: None

PATIENT
  Age: 87 Year
  Sex: Male
  Weight: 63.5036 kg

DRUGS (1)
  1. ARTANE [Suspect]
     Indication: PARKINSON'S DISEASE
     Dosage: 2 PER DAY
     Dates: start: 20120720, end: 20120720

REACTIONS (3)
  - FALL [None]
  - HALLUCINATION [None]
  - ILL-DEFINED DISORDER [None]
